FAERS Safety Report 7776969-4 (Version None)
Quarter: 2011Q3

REPORT INFORMATION
  Report Type: 
  Country: None (occurrence: None)
  Receive Date: 20110926
  Receipt Date: 20110912
  Transmission Date: 20111222
  Serious: Yes (Hospitalization)
  Sender: FDA-Public Use
  Company Number: US-BAYER-2011-085360

PATIENT
  Age: 62 Year
  Sex: Female

DRUGS (2)
  1. ASPIRIN [Suspect]
     Dosage: 500 MG, ONCE
     Route: 048
     Dates: start: 20110911
  2. ASPIRIN [Suspect]
     Dosage: 500 MG, ONCE
     Route: 048
     Dates: start: 20110909, end: 20110909

REACTIONS (3)
  - THROAT IRRITATION [None]
  - FOREIGN BODY [None]
  - PHARYNGEAL OEDEMA [None]
